FAERS Safety Report 6314681-9 (Version None)
Quarter: 2009Q3

REPORT INFORMATION
  Report Type: 
  Country: None (occurrence: None)
  Receive Date: 20090819
  Receipt Date: 20090812
  Transmission Date: 20100115
  Serious: Yes (Death, Other)
  Sender: FDA-Public Use
  Company Number: DE-AVENTIS-200910814DE

PATIENT
  Age: 67 Year
  Sex: Male
  Weight: 81 kg

DRUGS (4)
  1. DOCETAXEL [Suspect]
     Route: 042
     Dates: start: 20080930, end: 20081021
  2. DEXAMETHASONE TAB [Concomitant]
     Indication: ALLERGY PROPHYLAXIS
     Route: 048
     Dates: start: 20080929, end: 20081001
  3. DEXAMETHASONE TAB [Concomitant]
     Route: 048
     Dates: start: 20081020, end: 20081022
  4. LHRH [Concomitant]
     Indication: DRUG USE FOR UNKNOWN INDICATION
     Dosage: DOSE: NOT REPORTED

REACTIONS (18)
  - ALANINE AMINOTRANSFERASE INCREASED [None]
  - ANAEMIA [None]
  - ASPARTATE AMINOTRANSFERASE INCREASED [None]
  - BLOOD ALKALINE PHOSPHATASE INCREASED [None]
  - BLOOD LACTATE DEHYDROGENASE INCREASED [None]
  - BLOOD URIC ACID INCREASED [None]
  - EPISTAXIS [None]
  - GAMMA-GLUTAMYLTRANSFERASE INCREASED [None]
  - HAEMORRHAGE [None]
  - IMMUNOSUPPRESSION [None]
  - LEUKOPENIA [None]
  - LIVER FUNCTION TEST ABNORMAL [None]
  - MALIGNANT NEOPLASM PROGRESSION [None]
  - MULTI-ORGAN FAILURE [None]
  - PANCYTOPENIA [None]
  - RENAL FUNCTION TEST [None]
  - RENAL FUNCTION TEST ABNORMAL [None]
  - THROMBOCYTOPENIA [None]
